FAERS Safety Report 9001245 (Version 1)
Quarter: 2013Q1

REPORT INFORMATION
  Report Type: Spontaneous
  Country: US (occurrence: US)
  Receive Date: 20130107
  Receipt Date: 20130107
  Transmission Date: 20140127
  Serious: Yes (Death)
  Sender: FDA-Public Use
  Company Number: US-PFIZER INC-2013006235

PATIENT
  Age: 31 Year
  Sex: Female

DRUGS (7)
  1. LORATADINE [Suspect]
     Dosage: UNK
  2. CYCLOBENZAPRINE [Suspect]
     Dosage: UNK
  3. QUETIAPINE [Suspect]
     Dosage: UNK
  4. BUTALBITAL/CAFFEINE/CODEINE PHOSPHATE/PARACETAMOL [Suspect]
     Dosage: UNK
  5. ACETAMINOPHEN W/HYDROCODONE BITARTRATE [Suspect]
     Dosage: UNK
  6. TEMAZEPAM [Suspect]
     Dosage: UNK
  7. ACETAMINOPHEN W/OXYCODONE [Suspect]
     Dosage: UNK

REACTIONS (1)
  - Completed suicide [Fatal]
